FAERS Safety Report 5991632-8 (Version None)
Quarter: 2008Q4

REPORT INFORMATION
  Report Type: 
  Country: None (occurrence: None)
  Receive Date: 20081211
  Receipt Date: 20080502
  Transmission Date: 20090506
  Serious: No
  Sender: FDA-Public Use
  Company Number: US-AMGEN-KDL275217

PATIENT
  Sex: Female

DRUGS (12)
  1. ENBREL [Suspect]
     Indication: PSORIATIC ARTHROPATHY
     Route: 058
     Dates: start: 20080414
  2. ENBREL [Suspect]
     Indication: PSORIASIS
  3. METHOTREXATE [Concomitant]
     Dates: start: 20050101
  4. LIPITOR [Concomitant]
  5. CLARITIN [Concomitant]
  6. ASPIRIN [Concomitant]
  7. BENICAR [Concomitant]
  8. TRICOR [Concomitant]
  9. VITAMIN B-12 [Concomitant]
  10. LEXAPRO [Concomitant]
  11. XANAX [Concomitant]
  12. HYDROCODONE BITARTRATE [Concomitant]

REACTIONS (3)
  - ERYTHEMA [None]
  - INJECTION SITE PAIN [None]
  - PAIN [None]
